FAERS Safety Report 11159235 (Version 3)
Quarter: 2015Q3

REPORT INFORMATION
  Report Type: Spontaneous
  Country: JP (occurrence: JP)
  Receive Date: 20150603
  Receipt Date: 20150709
  Transmission Date: 20151125
  Serious: Yes (Death)
  Sender: FDA-Public Use
  Company Number: JP-OTSUKA-2015_002052

PATIENT

DRUGS (5)
  1. LASIX M [Concomitant]
     Active Substance: FUROSEMIDE
     Dosage: 120 MG/DAY
     Route: 048
     Dates: start: 20150514, end: 20150518
  2. SAMSCA [Suspect]
     Active Substance: TOLVAPTAN
     Dosage: 15 MG/DAY
     Route: 048
     Dates: start: 20150514, end: 20150518
  3. LASIX M [Concomitant]
     Active Substance: FUROSEMIDE
     Dosage: 160 MG/DAY
     Route: 048
     Dates: start: 20150519
  4. SAMSCA [Suspect]
     Active Substance: TOLVAPTAN
     Indication: OEDEMA DUE TO CARDIAC DISEASE
     Dosage: 7.5 MG/DAY
     Route: 048
     Dates: start: 20150401, end: 20150513
  5. LASIX M [Concomitant]
     Active Substance: FUROSEMIDE
     Indication: PRODUCT USED FOR UNKNOWN INDICATION
     Dosage: 80 MG/DAY
     Route: 048
     Dates: end: 20150513

REACTIONS (2)
  - Anal haemorrhage [Fatal]
  - Platelet count decreased [Fatal]

NARRATIVE: CASE EVENT DATE: 20150518
